FAERS Safety Report 4642118-4 (Version None)
Quarter: 2005Q2

REPORT INFORMATION
  Report Type: 
  Country: None (occurrence: None)
  Receive Date: 20050421
  Receipt Date: 20050421
  Transmission Date: 20051028
  Serious: Yes (Other)
  Sender: FDA-Public Use
  Company Number: None

PATIENT
  Age: 10 Month
  Sex: Male
  Weight: 8.0513 kg

DRUGS (1)
  1. ELIDEL [Suspect]
     Indication: ECZEMA
     Dosage: APPLIED SPARINGLY TO INVOLVED AREAS BID
     Route: 061
     Dates: start: 20040806

REACTIONS (1)
  - IDIOPATHIC THROMBOCYTOPENIC PURPURA [None]
